FAERS Safety Report 9926007 (Version 3)
Quarter: 2014Q1

REPORT INFORMATION
  Report Type: Report from Study
  Country: FR (occurrence: FR)
  Receive Date: 20140226
  Receipt Date: 20140310
  Transmission Date: 20141002
  Serious: Yes (Other)
  Sender: FDA-Public Use
  Company Number: FR-UCBSA-089521

PATIENT
  Age: 60 Year
  Sex: Female
  Weight: 70 kg

DRUGS (8)
  1. CIMZIA [Suspect]
     Indication: RHEUMATOID ARTHRITIS
     Route: 058
     Dates: end: 20130613
  2. METHOTREXATE [Suspect]
     Indication: RHEUMATOID ARTHRITIS
     Dates: start: 20130612, end: 20131209
  3. CORTANCYL [Suspect]
     Indication: RHEUMATOID ARTHRITIS
     Dosage: 5MG TO 15MG WHEN REQUIRED
     Route: 048
     Dates: start: 20130224, end: 20130725
  4. CORTANCYL [Suspect]
     Indication: RHEUMATOID ARTHRITIS
     Dosage: 10 MG
     Dates: start: 20130612, end: 20140228
  5. DOLIPRANE [Concomitant]
     Dosage: 1000 MG, WHEN REQUIRED
     Route: 048
     Dates: start: 20120207
  6. ACTONEL [Concomitant]
     Indication: OSTEOPOROSIS
     Dosage: 75 MG, 2  DAYS PER MONTH
     Dates: start: 20120426
  7. SPECIAFOLDINE [Concomitant]
     Indication: RHEUMATOID ARTHRITIS
     Dosage: 5 MG, 4 TIMES WEEKLY
     Dates: start: 20071115
  8. CACIT [Concomitant]
     Indication: OSTEOPOROSIS
     Dosage: 1000 MG, 1 TABLET DAILY
     Dates: start: 20110816

REACTIONS (2)
  - Osteonecrosis [Recovered/Resolved]
  - Tooth infection [Unknown]
